FAERS Safety Report 9445833 (Version 1)
Quarter: 2013Q3

REPORT INFORMATION
  Report Type: Spontaneous
  Country: CN (occurrence: CN)
  Receive Date: 20130807
  Receipt Date: 20130807
  Transmission Date: 20140515
  Serious: Yes (Hospitalization)
  Sender: FDA-Public Use
  Company Number: CN-BAYER-2013-094906

PATIENT
  Age: 37 Year
  Sex: Male
  Weight: 76 kg

DRUGS (5)
  1. BAYASPIRIN [Suspect]
     Indication: HYPERTENSION
     Dosage: 0.1 G, QD
     Route: 048
     Dates: start: 20130730
  2. VALSARTAN [Concomitant]
     Indication: HYPERTENSION
     Dosage: 80 MG, QD
     Route: 048
  3. METOPROLOL [Concomitant]
     Indication: HYPERTENSION
     Dosage: 25 MG, QD
     Route: 048
  4. NIFEDIPINE - SLOW RELEASE [Concomitant]
  5. YXIN [Concomitant]
     Indication: HYPERTENSION
     Dosage: 10 MG, BID
     Route: 048

REACTIONS (4)
  - Angioedema [Recovering/Resolving]
  - Hypoaesthesia oral [Recovering/Resolving]
  - Lip swelling [Recovering/Resolving]
  - Oedema [Recovering/Resolving]
